FAERS Safety Report 10906170 (Version 2)
Quarter: 2015Q2

REPORT INFORMATION
  Report Type: Spontaneous
  Country: US (occurrence: US)
  Receive Date: 20150311
  Receipt Date: 20150617
  Transmission Date: 20150821
  Serious: Yes (Death, Other)
  Sender: FDA-Public Use
  Company Number: US-GLAXOSMITHKLINE-US2015GSK031399

PATIENT
  Sex: Female
  Weight: 14 kg

DRUGS (2)
  1. TAFINLAR [Suspect]
     Active Substance: DABRAFENIB MESYLATE
     Indication: ADRENAL GLAND CANCER
     Dosage: 50 MG, BID
     Route: 048
     Dates: start: 20150128, end: 20150205
  2. MEKINIST [Suspect]
     Active Substance: TRAMETINIB DIMETHYL SULFOXIDE
     Indication: ADRENAL GLAND CANCER
     Dosage: 0.5 MG, QD
     Route: 048
     Dates: start: 20150128, end: 20150205

REACTIONS (2)
  - Neuroblastoma [Fatal]
  - Malignant neoplasm progression [Fatal]
